FAERS Safety Report 10642414 (Version 1)
Quarter: 2014Q4

REPORT INFORMATION
  Report Type: Spontaneous
  Country: ES (occurrence: None)
  Receive Date: 20141208
  Receipt Date: 20141208
  Transmission Date: 20150529
  Serious: Yes (Other)
  Sender: FDA-Public Use
  Company Number: ADR-2014-02288

PATIENT
  Age: 17 Year
  Sex: Female

DRUGS (1)
  1. BACLOFEN INTRATHECAL [Suspect]
     Active Substance: BACLOFEN
     Indication: MUSCLE SPASTICITY
     Dosage: DAY

REACTIONS (3)
  - Persecutory delusion [None]
  - Muscle spasticity [None]
  - Psychotic disorder [None]

NARRATIVE: CASE EVENT DATE: 20140101
